FAERS Safety Report 23099916 (Version 7)
Quarter: 2024Q3

REPORT INFORMATION
  Report Type: Spontaneous
  Country: AR (occurrence: AR)
  Receive Date: 20231024
  Receipt Date: 20240823
  Transmission Date: 20241016
  Serious: Yes (Other)
  Sender: GLAXOSMITHKLINE
  Company Number: AR-GLAXOSMITHKLINE-AR2023AMR133265

PATIENT

DRUGS (2)
  1. ZEJULA [Suspect]
     Active Substance: NIRAPARIB
     Indication: Product used for unknown indication
     Dosage: 1 DF, QD
     Dates: start: 20230828
  2. ZEJULA [Suspect]
     Active Substance: NIRAPARIB
     Dosage: 2 DF, QD
     Dates: start: 20230914, end: 20240808

REACTIONS (17)
  - Recurrent cancer [Unknown]
  - Vomiting [Unknown]
  - Abdominal pain upper [Unknown]
  - Dry mouth [Unknown]
  - Discomfort [Unknown]
  - Tumour marker increased [Unknown]
  - Neoplasm [Unknown]
  - Nausea [Unknown]
  - Illness [Unknown]
  - Pulmonary mass [Unknown]
  - Tachycardia [Unknown]
  - Anaemia [Unknown]
  - Pain [Unknown]
  - Neoplasm progression [Unknown]
  - Drug intolerance [Unknown]
  - Drug ineffective [Unknown]
  - Incorrect dose administered [Unknown]
